FAERS Safety Report 6557357-5 (Version None)
Quarter: 2010Q1

REPORT INFORMATION
  Report Type: 
  Country: None (occurrence: None)
  Receive Date: 20100127
  Receipt Date: 20100127
  Transmission Date: 20100710
  Serious: Yes (Other)
  Sender: FDA-Public Use
  Company Number: None

PATIENT
  Age: 25 Year
  Sex: Female
  Weight: 42.6381 kg

DRUGS (1)
  1. MIRENA [Suspect]
     Indication: CONTRACEPTION
     Dates: start: 20070518, end: 20100127

REACTIONS (5)
  - DEPRESSION [None]
  - MOOD SWINGS [None]
  - URINARY TRACT INFECTION [None]
  - VAGINITIS BACTERIAL [None]
  - VULVOVAGINAL MYCOTIC INFECTION [None]
